FAERS Safety Report 5519057-X (Version None)
Quarter: 2007Q4

REPORT INFORMATION
  Report Type: 
  Country: None (occurrence: None)
  Receive Date: 20071116
  Receipt Date: 20071112
  Transmission Date: 20080405
  Serious: Yes (Hospitalization)
  Sender: FDA-Public Use
  Company Number: DE-BRISTOL-MYERS SQUIBB COMPANY-13983440

PATIENT
  Sex: Male

DRUGS (3)
  1. CISPLATIN [Suspect]
     Indication: PLEURAL MESOTHELIOMA MALIGNANT
     Route: 034
     Dates: start: 20071012
  2. MITOMYCIN MEDAC [Suspect]
     Indication: PLEURAL MESOTHELIOMA MALIGNANT
     Route: 034
     Dates: start: 20071012
  3. ADRIACIN [Suspect]
     Indication: PLEURAL MESOTHELIOMA MALIGNANT
     Route: 034
     Dates: start: 20071012

REACTIONS (4)
  - DIARRHOEA [None]
  - DRUG ADMINISTRATION ERROR [None]
  - SHOCK [None]
  - VOMITING [None]
